FAERS Safety Report 9412170 (Version 1)
Quarter: 2013Q3

REPORT INFORMATION
  Report Type: Spontaneous
  Country: US (occurrence: US)
  Receive Date: 20130722
  Receipt Date: 20130722
  Transmission Date: 20140515
  Serious: No
  Sender: FDA-Public Use
  Company Number: US-US-EMD SERONO, INC.-7062469

PATIENT
  Sex: Female
  Weight: 73 kg

DRUGS (1)
  1. REBIF [Suspect]
     Indication: MULTIPLE SCLEROSIS
     Route: 058
     Dates: start: 20071031, end: 201206

REACTIONS (8)
  - Blood glucose increased [Recovered/Resolved]
  - Dyspepsia [Unknown]
  - Rectal haemorrhage [Unknown]
  - Ear disorder [Unknown]
  - Urinary tract infection [Unknown]
  - Multiple sclerosis relapse [Unknown]
  - Multiple sclerosis [Unknown]
  - Pyrexia [Unknown]
